FAERS Safety Report 6674840-2 (Version None)
Quarter: 2010Q2

REPORT INFORMATION
  Report Type: 
  Country: None (occurrence: None)
  Receive Date: 20100409
  Receipt Date: 20100331
  Transmission Date: 20101027
  Serious: Yes (Hospitalization, Other)
  Sender: FDA-Public Use
  Company Number: US-JNJFOC-20100400681

PATIENT
  Age: 54 Year
  Sex: Male
  Weight: 106.14 kg

DRUGS (7)
  1. RISPERDAL [Suspect]
     Indication: BIPOLAR DISORDER
     Route: 048
  2. PLAVIX [Concomitant]
     Indication: CORONARY ARTERY DISEASE
  3. TOPROL-XL [Concomitant]
     Indication: CORONARY ARTERY DISEASE
  4. PRAVACHOL [Concomitant]
     Indication: HYPERCHOLESTEROLAEMIA
  5. ZOLOFT [Concomitant]
     Indication: DEPRESSION
  6. ZETIA [Concomitant]
     Indication: HYPERCHOLESTEROLAEMIA
  7. LEVOTHYROXINE SODIUM [Concomitant]
     Indication: HYPOTHYROIDISM

REACTIONS (7)
  - CORONARY ARTERIAL STENT INSERTION [None]
  - CORONARY ARTERY DISEASE [None]
  - DEPRESSION [None]
  - DIABETES MELLITUS [None]
  - HYPERCHOLESTEROLAEMIA [None]
  - HYPOTHYROIDISM [None]
  - MICROALBUMINURIA [None]
